FAERS Safety Report 8416540-4 (Version None)
Quarter: 2012Q2

REPORT INFORMATION
  Report Type: 
  Country: None (occurrence: None)
  Receive Date: 20120606
  Receipt Date: 20120531
  Transmission Date: 20120825
  Serious: Yes (Death, Hospitalization)
  Sender: FDA-Public Use
  Company Number: US-GLAXOSMITHKLINE-B0724889A

PATIENT
  Age: 76 Year
  Sex: Female

DRUGS (8)
  1. NORVASC [Concomitant]
  2. GLUCOPHAGE [Concomitant]
  3. ALTACE [Concomitant]
  4. ARICEPT [Concomitant]
  5. AVANDIA [Suspect]
     Indication: DIABETES MELLITUS
     Dosage: 8MG PER DAY
     Route: 048
     Dates: start: 20010219, end: 20010929
  6. GLUCOTROL [Concomitant]
  7. ZOLOFT [Concomitant]
  8. ATROVENT [Concomitant]

REACTIONS (4)
  - CARDIAC ARREST [None]
  - ATRIAL FIBRILLATION [None]
  - MYOCARDIAL INFARCTION [None]
  - CARDIAC FAILURE CONGESTIVE [None]
